FAERS Safety Report 16316916 (Version 5)
Quarter: 2019Q3

REPORT INFORMATION
  Report Type: Spontaneous
  Country: CA (occurrence: CA)
  Receive Date: 20190515
  Receipt Date: 20190930
  Transmission Date: 20191004
  Serious: Yes (Other)
  Sender: FDA-Public Use
  Company Number: CA-CELLTRION INC.-2018CA023092

PATIENT

DRUGS (17)
  1. INFLECTRA [Suspect]
     Active Substance: INFLIXIMAB-DYYB
     Dosage: 550 MG AT 7 WEEKS AND A DAY AFTER LAST INFUSION
     Route: 042
     Dates: start: 20190501
  2. INFLECTRA [Suspect]
     Active Substance: INFLIXIMAB-DYYB
     Dosage: 550 MG AT 0,2,6 WEEKS, THEN EVERY 8 WEEKS
     Route: 042
     Dates: start: 20190820
  3. INFLECTRA [Suspect]
     Active Substance: INFLIXIMAB-DYYB
     Dosage: 600 MG EVERY 4 WEEKS
     Route: 042
     Dates: start: 20190918
  4. IMURAN [Concomitant]
     Active Substance: AZATHIOPRINE
     Dosage: 100 MG, DAILY
     Route: 048
  5. IMURAN [Concomitant]
     Active Substance: AZATHIOPRINE
     Dosage: 250 MG, 1X/DAY
     Route: 048
  6. VERSED [Concomitant]
     Active Substance: MIDAZOLAM HYDROCHLORIDE
     Indication: SEDATION
     Dosage: 3 MG, UNK
     Route: 065
     Dates: start: 20190404, end: 20190404
  7. INFLECTRA [Suspect]
     Active Substance: INFLIXIMAB-DYYB
     Dosage: 550 MG, 0, 2, 6, EVERY 8 WEEKS
     Route: 042
     Dates: start: 20190117
  8. INFLECTRA [Suspect]
     Active Substance: INFLIXIMAB-DYYB
     Dosage: 550 MG AT 0,2,6 WEEKS, THEN EVERY 8 WEEKS
     Route: 042
     Dates: start: 20190627
  9. FENTANYL. [Concomitant]
     Active Substance: FENTANYL
     Indication: SEDATION
     Dosage: 40 UG, UNK
     Route: 065
     Dates: start: 20190404, end: 20190404
  10. FENTANYL. [Concomitant]
     Active Substance: FENTANYL
     Indication: ANALGESIC THERAPY
  11. INFLECTRA [Suspect]
     Active Substance: INFLIXIMAB-DYYB
     Indication: CROHN^S DISEASE
     Dosage: 550 MG, 0, 2, 6, EVERY 8 WEEKS
     Route: 042
     Dates: start: 20180816
  12. INFLECTRA [Suspect]
     Active Substance: INFLIXIMAB-DYYB
     Dosage: 550 MG AT 0,2,6 WEEKS, THEN EVERY 8 WEEKS
     Route: 042
     Dates: start: 20190725
  13. INFLECTRA [Suspect]
     Active Substance: INFLIXIMAB-DYYB
     Dosage: 550 MG, 0, 2, 6, EVERY 8 WEEKS
     Route: 042
     Dates: start: 20190312
  14. INFLECTRA [Suspect]
     Active Substance: INFLIXIMAB-DYYB
     Dosage: 550 MG, 0, 2, 6, EVERY 8 WEEKS
     Route: 042
     Dates: start: 20181120
  15. VERSED [Concomitant]
     Active Substance: MIDAZOLAM HYDROCHLORIDE
     Indication: ANALGESIC THERAPY
  16. INFLECTRA [Suspect]
     Active Substance: INFLIXIMAB-DYYB
     Dosage: 550 MG, 0, 2, 6, EVERY 8 WEEKS
     Route: 042
     Dates: start: 20180925
  17. INFLECTRA [Suspect]
     Active Substance: INFLIXIMAB-DYYB
     Dosage: 550 MG AT 0,2,6 WEEKS, THEN EVERY 8 WEEKS
     Route: 042
     Dates: start: 20190528

REACTIONS (9)
  - Inappropriate schedule of product administration [Unknown]
  - Haemorrhage [Not Recovered/Not Resolved]
  - Intentional product use issue [Unknown]
  - Therapeutic response shortened [Not Recovered/Not Resolved]
  - Off label use [Unknown]
  - Loss of personal independence in daily activities [Unknown]
  - Condition aggravated [Not Recovered/Not Resolved]
  - Blood pressure fluctuation [Unknown]
  - Intestinal obstruction [Unknown]

NARRATIVE: CASE EVENT DATE: 20180925
